FAERS Safety Report 6261512-1 (Version None)
Quarter: 2009Q3

REPORT INFORMATION
  Report Type: 
  Country: None (occurrence: None)
  Receive Date: 20090707
  Receipt Date: 20090707
  Transmission Date: 20100115
  Serious: Yes (Hospitalization)
  Sender: FDA-Public Use
  Company Number: None

PATIENT
  Age: 39 Year
  Sex: Male
  Weight: 68.0396 kg

DRUGS (5)
  1. QUETIAPINE FUMARATE [Suspect]
     Indication: ALCOHOL USE
     Dosage: 600 MG Q D
     Dates: start: 20090423, end: 20090625
  2. QUETIAPINE FUMARATE [Suspect]
     Indication: BIPOLAR DISORDER
     Dosage: 600 MG Q D
     Dates: start: 20090423, end: 20090625
  3. LITHIUM [Concomitant]
  4. PROVENTIL PRN [Concomitant]
  5. ADVAIR PRN [Concomitant]

REACTIONS (3)
  - ASTHMA [None]
  - CHEST PAIN [None]
  - CONDITION AGGRAVATED [None]
